FAERS Safety Report 22259154 (Version 1)
Quarter: 2023Q2

REPORT INFORMATION
  Report Type: Spontaneous
  Country: US (occurrence: US)
  Receive Date: 20230427
  Receipt Date: 20230427
  Transmission Date: 20230722
  Serious: Yes (Other)
  Sender: FDA-Public Use
  Company Number: US-MSNLABS-2023MSNLIT00666

PATIENT

DRUGS (8)
  1. DECITABINE [Suspect]
     Active Substance: DECITABINE
     Indication: Myelofibrosis
     Dosage: DAUNORUBICIN 44 MG/CYTARABINE 100 MG/M2
     Route: 042
  2. ENASIDENIB [Suspect]
     Active Substance: ENASIDENIB
     Indication: Myelofibrosis
     Route: 065
  3. CYTARABINE\DAUNORUBICIN [Suspect]
     Active Substance: CYTARABINE\DAUNORUBICIN
     Indication: Myelofibrosis
     Dosage: DAUNORUBICIN 44 MG/CYTARABINE 100 MG/M2 I/V
     Route: 042
  4. CLADRIBINE [Suspect]
     Active Substance: CLADRIBINE
     Indication: Myelofibrosis
     Route: 065
  5. VENETOCLAX [Suspect]
     Active Substance: VENETOCLAX
     Indication: Myelofibrosis
     Route: 065
  6. CYTARABINE [Suspect]
     Active Substance: CYTARABINE
  7. FILGRASTIM [Suspect]
     Active Substance: FILGRASTIM
  8. MITOXANTRONE [Suspect]
     Active Substance: MITOXANTRONE HYDROCHLORIDE

REACTIONS (1)
  - Therapy non-responder [Unknown]
